FAERS Safety Report 6724823-9 (Version None)
Quarter: 2010Q2

REPORT INFORMATION
  Report Type: 
  Country: None (occurrence: None)
  Receive Date: 20100513
  Receipt Date: 20100513
  Transmission Date: 20101027
  Serious: Yes (Disabling)
  Sender: FDA-Public Use
  Company Number: None

PATIENT
  Age: 19 Year
  Sex: Female
  Weight: 58.9676 kg

DRUGS (1)
  1. MONISTAT [Suspect]
     Indication: FUNGAL INFECTION
     Dosage: ONCE VAG
     Dates: start: 20100511, end: 20100512

REACTIONS (8)
  - CHEMICAL BURN OF SKIN [None]
  - CONDITION AGGRAVATED [None]
  - FEELING HOT [None]
  - FUNGAL INFECTION [None]
  - PRURITUS [None]
  - SWELLING [None]
  - VAGINAL DISCHARGE [None]
  - VULVAL DISORDER [None]
